FAERS Safety Report 18999474 (Version 11)
Quarter: 2022Q4

REPORT INFORMATION
  Report Type: Report from Study
  Country: US (occurrence: US)
  Receive Date: 20210311
  Receipt Date: 20221209
  Transmission Date: 20230113
  Serious: Yes (Other)
  Sender: FDA-Public Use
  Company Number: US-TAKEDA-US201919994

PATIENT
  Age: 59 Year
  Sex: Female

DRUGS (2)
  1. HUMAN IMMUNOGLOBULIN G [Suspect]
     Active Substance: HUMAN IMMUNOGLOBULIN G
     Indication: Primary immunodeficiency syndrome
     Dosage: UNK
     Route: 042
  2. HUMAN IMMUNOGLOBULIN G [Suspect]
     Active Substance: HUMAN IMMUNOGLOBULIN G
     Indication: Hypogammaglobulinaemia

REACTIONS (19)
  - Sinusitis [Unknown]
  - Ear infection [Unknown]
  - Meningococcal sepsis [Unknown]
  - Kidney infection [Unknown]
  - Throat irritation [Unknown]
  - Illness [Unknown]
  - Dysphonia [Unknown]
  - Weight decreased [Unknown]
  - Helicobacter gastritis [Unknown]
  - Fatigue [Unknown]
  - Abdominal pain upper [Unknown]
  - Headache [Unknown]
  - Migraine [Unknown]
  - Malaise [Unknown]
  - Product supply issue [Unknown]
  - Superficial injury of eye [Recovering/Resolving]
  - Weight increased [Unknown]
  - Urinary tract infection [Unknown]
  - Oropharyngeal pain [Unknown]

NARRATIVE: CASE EVENT DATE: 20190617
